FAERS Safety Report 20931013 (Version 1)
Quarter: 2022Q2

REPORT INFORMATION
  Report Type: Spontaneous
  Country: US (occurrence: None)
  Receive Date: 20220607
  Receipt Date: 20220607
  Transmission Date: 20220721
  Serious: Yes (unspecified)
  Sender: FDA-Public Use
  Company Number: None

PATIENT
  Sex: Male
  Weight: 57.61 kg

DRUGS (1)
  1. EFFEXOR [Suspect]
     Active Substance: VENLAFAXINE HYDROCHLORIDE

REACTIONS (14)
  - Personality change [None]
  - Agitation [None]
  - Irritability [None]
  - Anxiety [None]
  - Sleep disorder [None]
  - Condition aggravated [None]
  - Abnormal dreams [None]
  - Nightmare [None]
  - Tachyphrenia [None]
  - Speech disorder [None]
  - Dizziness [None]
  - Mood altered [None]
  - Loss of consciousness [None]
  - Behaviour disorder [None]
